FAERS Safety Report 12334935 (Version 2)
Quarter: 2016Q2

REPORT INFORMATION
  Report Type: Spontaneous
  Country: US (occurrence: US)
  Receive Date: 20160504
  Receipt Date: 20160506
  Transmission Date: 20160815
  Serious: Yes (Hospitalization)
  Sender: FDA-Public Use
  Company Number: US-B.I. PHARMACEUTICALS,INC./RIDGEFIELD-2016-BI-27534BP

PATIENT
  Sex: Female

DRUGS (6)
  1. SERAVENT [Concomitant]
     Indication: ASTHMA
     Dosage: 2 PUF
     Route: 055
     Dates: start: 2014
  2. ASPIRIN. [Concomitant]
     Active Substance: ASPIRIN
     Indication: PAIN
     Dosage: 325 MG
     Route: 048
     Dates: start: 1985
  3. PULMOCORT [Concomitant]
     Indication: ASTHMA
     Dosage: 1 PUF
     Route: 055
  4. SPIRIVA [Suspect]
     Active Substance: TIOTROPIUM BROMIDE MONOHYDRATE
     Indication: CHRONIC OBSTRUCTIVE PULMONARY DISEASE
     Dosage: 5 MCG
     Route: 055
     Dates: start: 2014
  5. ASPIRIN. [Concomitant]
     Active Substance: ASPIRIN
     Indication: MUSCULOSKELETAL STIFFNESS
  6. AZELISTINE [Concomitant]
     Indication: SINUSITIS
     Dosage: DOSE PER APPLICATION AND DAILY DOSE: 2 SPRAY; FORMULATION: NASAL SPRAY
     Route: 045

REACTIONS (3)
  - Dyspnoea [Not Recovered/Not Resolved]
  - Dyspnoea exertional [Not Recovered/Not Resolved]
  - Respiratory tract infection [Not Recovered/Not Resolved]

NARRATIVE: CASE EVENT DATE: 2014
